FAERS Safety Report 8337674-9 (Version None)
Quarter: 2012Q2

REPORT INFORMATION
  Report Type: 
  Country: None (occurrence: None)
  Receive Date: 20120504
  Receipt Date: 20120504
  Transmission Date: 20120825
  Serious: Yes (Other)
  Sender: FDA-Public Use
  Company Number: None

PATIENT
  Age: 45 Year
  Sex: Male
  Weight: 51.709 kg

DRUGS (3)
  1. CYCLOBENZAPRINE [Suspect]
     Indication: MUSCLE SPASMS
     Dosage: |DOSAGETEXT: 1 TABLET||STRENGTH: 10 MG||FREQ: AT BED TIME|
     Dates: start: 20100907, end: 20110608
  2. CYCLOBENZAPRINE [Suspect]
     Indication: HEAD INJURY
     Dosage: |DOSAGETEXT: 1 TABLET||STRENGTH: 10 MG||FREQ: AT BED TIME|
     Dates: start: 20100907, end: 20110608
  3. CYCLOBENZAPRINE [Suspect]
     Indication: FACET JOINT SYNDROME
     Dosage: |DOSAGETEXT: 1 TABLET||STRENGTH: 10 MG||FREQ: AT BED TIME|
     Dates: start: 20100907, end: 20110608

REACTIONS (9)
  - CHEST PAIN [None]
  - DYSPEPSIA [None]
  - DIZZINESS [None]
  - HEART RATE IRREGULAR [None]
  - DRY MOUTH [None]
  - DYSSTASIA [None]
  - FATIGUE [None]
  - GASTRIC DISORDER [None]
  - THROAT IRRITATION [None]
